FAERS Safety Report 8989714 (Version 1)
Quarter: 2012Q4

REPORT INFORMATION
  Report Type: 
  Country: US (occurrence: US)
  Receive Date: 20121228
  Receipt Date: 20121228
  Transmission Date: 20130627
  Serious: No
  Sender: FDA-Public Use
  Company Number: US-ASTRAZENECA-2012SE93599

PATIENT
  Age: 43 Year
  Sex: Female
  Weight: 90.7 kg

DRUGS (3)
  1. SEROQUEL [Suspect]
     Indication: BIPOLAR DISORDER
     Route: 048
     Dates: start: 20121212
  2. VIMOVO [Suspect]
     Indication: OSTEOARTHRITIS
     Dosage: 500 MG/20 MG, BID
     Route: 048
     Dates: start: 2012
  3. VIMOVO [Suspect]
     Indication: PAIN
     Dosage: 500 MG/20 MG, BID
     Route: 048
     Dates: start: 2012

REACTIONS (2)
  - Poor quality sleep [Unknown]
  - Intentional drug misuse [Unknown]
